FAERS Safety Report 23299524 (Version 1)
Quarter: 2023Q4

REPORT INFORMATION
  Report Type: Spontaneous
  Country: JP (occurrence: JP)
  Receive Date: 20231215
  Receipt Date: 20231215
  Transmission Date: 20240110
  Serious: Yes (Other)
  Sender: FDA-Public Use
  Company Number: JP-NOVOPROD-1150425

PATIENT
  Age: 34 Year
  Sex: Female
  Weight: 57.4 kg

DRUGS (3)
  1. LEVEMIR [Suspect]
     Active Substance: INSULIN DETEMIR
     Indication: Latent autoimmune diabetes in adults
     Dosage: 4 IU, QD (0-0-4 )
     Route: 058
  2. HUMALOG [Suspect]
     Active Substance: INSULIN LISPRO
     Dosage: 20 IU, QD (8-4-8IU/DAY)
     Route: 058
  3. HUMALOG [Suspect]
     Active Substance: INSULIN LISPRO
     Indication: Latent autoimmune diabetes in adults
     Dosage: 45 IU, QD(20-10-15IU/DAY)
     Route: 058

REACTIONS (3)
  - Amniotic cavity infection [Unknown]
  - Premature delivery [Unknown]
  - Maternal exposure during pregnancy [Recovered/Resolved]
